FAERS Safety Report 17914568 (Version 3)
Quarter: 2021Q3

REPORT INFORMATION
  Report Type: Report from Study
  Country: PL (occurrence: PL)
  Receive Date: 20200619
  Receipt Date: 20210706
  Transmission Date: 20211014
  Serious: Yes (Hospitalization, Other)
  Sender: FDA-Public Use
  Company Number: PL-AUROBINDO-AUR-APL-2020-029891

PATIENT
  Sex: Female

DRUGS (7)
  1. MEBEVERINE [Suspect]
     Active Substance: MEBEVERINE
     Indication: INTESTINAL OBSTRUCTION
     Dosage: UNK
     Route: 065
  2. RANITIDINE. [Suspect]
     Active Substance: RANITIDINE
     Indication: INTESTINAL OBSTRUCTION
     Dosage: UNK
     Route: 065
  3. SIMETHICONE (DIMETHICONE) [Suspect]
     Active Substance: DIMETHICONE
     Indication: INTESTINAL OBSTRUCTION
     Dosage: UNK
     Route: 065
  4. OMEPRAZOLE. [Suspect]
     Active Substance: OMEPRAZOLE
     Indication: INTESTINAL OBSTRUCTION
     Dosage: UNK
     Route: 065
  5. DEXAMETHASONE. [Suspect]
     Active Substance: DEXAMETHASONE
     Indication: INTESTINAL OBSTRUCTION
     Dosage: UNK
     Route: 065
  6. MAGNESIUM SULFATE. [Suspect]
     Active Substance: MAGNESIUM SULFATE
     Indication: INTESTINAL OBSTRUCTION
     Dosage: UNK
     Route: 065
  7. BUSCOLYSIN [Suspect]
     Active Substance: BUTYLSCOPOLAMINE
     Indication: INTESTINAL OBSTRUCTION
     Dosage: UNK
     Route: 065

REACTIONS (2)
  - Drug ineffective [Unknown]
  - Drug ineffective for unapproved indication [Unknown]
